FAERS Safety Report 14540180 (Version 1)
Quarter: 2018Q1

REPORT INFORMATION
  Report Type: Spontaneous
  Country: DE (occurrence: DE)
  Receive Date: 20180216
  Receipt Date: 20180216
  Transmission Date: 20180509
  Serious: Yes (Death, Other)
  Sender: FDA-Public Use
  Company Number: PHHY2018DE026150

PATIENT

DRUGS (2)
  1. SORAFENIB [Concomitant]
     Active Substance: SORAFENIB
     Indication: PRODUCT USE IN UNAPPROVED INDICATION
     Route: 065
  2. CERTICAN [Suspect]
     Active Substance: EVEROLIMUS
     Indication: LIVER TRANSPLANT
     Route: 065

REACTIONS (4)
  - Metastases to lung [Fatal]
  - Renal impairment [Fatal]
  - Contraindicated product administered [Fatal]
  - Death [Fatal]
